FAERS Safety Report 6065668-5 (Version None)
Quarter: 2009Q1

REPORT INFORMATION
  Report Type: 
  Country: None (occurrence: None)
  Receive Date: 20090130
  Receipt Date: 20090120
  Transmission Date: 20090719
  Serious: Yes (Other)
  Sender: FDA-Public Use
  Company Number: 100#03#2009-00287

PATIENT
  Age: 72 Year
  Sex: Male

DRUGS (8)
  1. ERYTHROMYCIN [Suspect]
     Indication: LOWER RESPIRATORY TRACT INFECTION
     Dosage: 250 MG EIGHT TIMES DAILY ORAL
     Route: 048
     Dates: start: 20081219, end: 20081222
  2. ATORVASTATIN CALCIUM [Suspect]
     Indication: HYPERCHOLESTEROLAEMIA
     Dosage: 20 MG ONCE DAILY ORAL
     Route: 048
  3. ACETYLSALICYLIC ACID SRT [Concomitant]
  4. CETIRIZINE HCL [Concomitant]
  5. ENALAPRIL MALEATE [Concomitant]
  6. ISOTARD XL (ISOSORBIDE MONONITRATE) [Concomitant]
  7. METOPROLOL TARTRATE [Concomitant]
  8. COVONIA (UNKNOWN) [Concomitant]

REACTIONS (5)
  - ABDOMINAL PAIN UPPER [None]
  - HYPERHIDROSIS [None]
  - NAUSEA [None]
  - PYREXIA [None]
  - VOMITING [None]
